FAERS Safety Report 25032087 (Version 1)
Quarter: 2025Q1

REPORT INFORMATION
  Report Type: Spontaneous
  Country: CA (occurrence: CA)
  Receive Date: 20250303
  Receipt Date: 20250303
  Transmission Date: 20250409
  Serious: Yes (Death, Other)
  Sender: PFIZER
  Company Number: CA-PFIZER INC-202500046689

PATIENT
  Age: 77 Year
  Sex: Female

DRUGS (5)
  1. RUXIENCE [Suspect]
     Active Substance: RITUXIMAB-PVVR
     Indication: Rheumatoid arthritis
     Route: 042
     Dates: start: 20240311, end: 20240325
  2. BISOPROLOL [Concomitant]
     Active Substance: BISOPROLOL
  3. CALCIUM [Concomitant]
     Active Substance: CALCIUM
  4. METHOTREXATE [Concomitant]
     Active Substance: METHOTREXATE
  5. VITA D [COLECALCIFEROL] [Concomitant]

REACTIONS (1)
  - Death [Fatal]
